FAERS Safety Report 5670340-7 (Version None)
Quarter: 2008Q2

REPORT INFORMATION
  Report Type: 
  Country: None (occurrence: None)
  Receive Date: 20080229
  Receipt Date: 20070828
  Transmission Date: 20081010
  Serious: Yes (Other)
  Sender: FDA-Public Use
  Company Number: 246004

PATIENT
  Age: 14 Year
  Sex: Male
  Weight: 59 kg

DRUGS (7)
  1. NUTROPIN AQ [Suspect]
     Indication: BODY HEIGHT BELOW NORMAL
     Dosage: 3 MG, QD, SUBCUTANEOUS
     Route: 058
     Dates: start: 20070502
  2. ATENOLOL [Concomitant]
  3. PREDNISONE TAB [Concomitant]
  4. CELLCEPT [Concomitant]
  5. CALCIUM D 500 (CALCIUM CARBONATE, CHOLECALCIFEROL) [Concomitant]
  6. PROGRAF [Concomitant]
  7. BACTRIM [Concomitant]

REACTIONS (1)
  - EPIPHYSIOLYSIS [None]
